FAERS Safety Report 6215592-X (Version None)
Quarter: 2009Q2

REPORT INFORMATION
  Report Type: 
  Country: None (occurrence: None)
  Receive Date: 20090603
  Receipt Date: 20090603
  Transmission Date: 20091009
  Serious: Yes (Other)
  Sender: FDA-Public Use
  Company Number: None

PATIENT
  Age: 54 Year
  Sex: Female
  Weight: 81.6475 kg

DRUGS (1)
  1. ACTONEL [Suspect]
     Indication: RESORPTION BONE INCREASED
     Dosage: 150MG Q MONTH ORALLY
     Route: 048
     Dates: start: 20090517

REACTIONS (4)
  - ARTHRALGIA [None]
  - GASTRITIS [None]
  - OESOPHAGITIS [None]
  - PYREXIA [None]
